FAERS Safety Report 13175347 (Version 2)
Quarter: 2017Q1

REPORT INFORMATION
  Report Type: Spontaneous
  Country: US (occurrence: US)
  Receive Date: 20170201
  Receipt Date: 20170317
  Transmission Date: 20170428
  Serious: No
  Sender: FDA-Public Use
  Company Number: US-009507513-1701USA013576

PATIENT

DRUGS (2)
  1. VARIVAX [Concomitant]
     Active Substance: VARICELLA-ZOSTER VIRUS STRAIN OKA/MERCK LIVE ANTIGEN
     Indication: PROPHYLAXIS
     Route: 058
  2. STERILE DILUENT [Suspect]
     Active Substance: WATER
     Dosage: UNK
     Route: 058

REACTIONS (2)
  - Incorrect product storage [Unknown]
  - No adverse event [Unknown]
